FAERS Safety Report 12009557 (Version 2)
Quarter: 2016Q1

REPORT INFORMATION
  Report Type: Spontaneous
  Country: FR (occurrence: FR)
  Receive Date: 20160205
  Receipt Date: 20160208
  Transmission Date: 20160526
  Serious: Yes (Other)
  Sender: FDA-Public Use
  Company Number: FR-SA-2016SA015382

PATIENT
  Age: 61 Year
  Sex: Male

DRUGS (11)
  1. ALPRAZOLAM. [Concomitant]
     Active Substance: ALPRAZOLAM
  2. METEOSPASMYL [Concomitant]
     Active Substance: ALVERINE CITRATE\DIMETHICONE
  3. METHOTREXATE [Concomitant]
     Active Substance: METHOTREXATE
     Dates: start: 201511
  4. LYRICA [Concomitant]
     Active Substance: PREGABALIN
  5. EFFENTORA [Suspect]
     Active Substance: FENTANYL CITRATE
     Route: 048
  6. CITALOPRAM [Concomitant]
     Active Substance: CITALOPRAM HYDROBROMIDE
  7. IMETH [Concomitant]
     Active Substance: METHOTREXATE SODIUM
     Dates: start: 201511
  8. INEXIUM [Concomitant]
     Active Substance: ESOMEPRAZOLE
  9. RIFINAH [Interacting]
     Active Substance: ISONIAZID\RIFAMPIN
     Route: 048
     Dates: start: 20160105, end: 20160106
  10. OXYCONTIN [Suspect]
     Active Substance: OXYCODONE HYDROCHLORIDE
     Route: 048
  11. OXYCONTIN [Suspect]
     Active Substance: OXYCODONE HYDROCHLORIDE
     Dosage: DOSE-ONGOING AT INCREASE DOSAGE
     Route: 048

REACTIONS (7)
  - Chills [Recovered/Resolved]
  - Drug interaction [Unknown]
  - Drug withdrawal syndrome [Recovering/Resolving]
  - Nervousness [Recovered/Resolved]
  - Asthenia [Not Recovered/Not Resolved]
  - Tremor [Recovered/Resolved]
  - Pain in extremity [Recovered/Resolved]

NARRATIVE: CASE EVENT DATE: 20160106
